FAERS Safety Report 24667394 (Version 1)
Quarter: 2024Q4

REPORT INFORMATION
  Report Type: Spontaneous
  Country: CN (occurrence: CN)
  Receive Date: 20241126
  Receipt Date: 20241126
  Transmission Date: 20250114
  Serious: Yes (Life-Threatening, Hospitalization)
  Sender: TAKEDA
  Company Number: CN-HUTCHMED LIMITED-HMP2024CN02620

PATIENT
  Age: 60 Year
  Sex: Female
  Weight: 53 kg

DRUGS (1)
  1. FRUQUINTINIB [Suspect]
     Active Substance: FRUQUINTINIB
     Indication: Colon cancer
     Dosage: 5 MG, QD
     Dates: start: 20241022, end: 20241102

REACTIONS (4)
  - Oedema [Unknown]
  - Blood pressure increased [Unknown]
  - Proteinuria [Unknown]
  - Platelet count decreased [Unknown]

NARRATIVE: CASE EVENT DATE: 20241101
